FAERS Safety Report 24816892 (Version 1)
Quarter: 2025Q1

REPORT INFORMATION
  Report Type: Report from Study
  Country: US (occurrence: US)
  Receive Date: 20250107
  Receipt Date: 20250107
  Transmission Date: 20250408
  Serious: Yes (Other)
  Sender: JOHNSON AND JOHNSON
  Company Number: US-JNJFOC-20241289203

PATIENT
  Age: 67 Year
  Sex: Male

DRUGS (1)
  1. SPRAVATO [Suspect]
     Active Substance: ESKETAMINE
     Indication: Depression
     Route: 045
     Dates: start: 20241220, end: 20241223

REACTIONS (4)
  - Loss of consciousness [Unknown]
  - Malaise [Unknown]
  - Brain fog [Unknown]
  - Dissociation [Unknown]

NARRATIVE: CASE EVENT DATE: 20241201
